FAERS Safety Report 10669670 (Version 5)
Quarter: 2015Q4

REPORT INFORMATION
  Report Type: Report from Study
  Country: US (occurrence: US)
  Receive Date: 20141222
  Receipt Date: 20151218
  Transmission Date: 20160304
  Serious: Yes (Hospitalization)
  Sender: FDA-Public Use
  Company Number: US-TARO-2014TAR00634

PATIENT
  Age: 85 Year
  Sex: Female
  Weight: 103.76 kg

DRUGS (20)
  1. MAGOXIDE [Concomitant]
     Dosage: 400 MG, 1X/DAY
     Route: 048
     Dates: start: 2004
  2. METFORMIN [Concomitant]
     Active Substance: METFORMIN HYDROCHLORIDE
     Dosage: 500 MG, UNK
     Route: 048
     Dates: start: 1986
  3. ASPIRIN. [Concomitant]
     Active Substance: ASPIRIN
     Dosage: 81 MG, 1X/DAY
     Route: 048
     Dates: start: 200405
  4. NIFEDIPINE. [Concomitant]
     Active Substance: NIFEDIPINE
     Dosage: 60 MG, 1X/DAY
     Route: 048
     Dates: start: 200405
  5. GEMFIBROZIL. [Concomitant]
     Active Substance: GEMFIBROZIL
     Dosage: 600 MG, 1X/DAY
     Route: 048
     Dates: start: 201412
  6. GLYBURIDE. [Concomitant]
     Active Substance: GLYBURIDE
     Dosage: 2.5 MG, 1X/DAY
     Route: 048
     Dates: start: 1986
  7. FISH OIL [Concomitant]
     Active Substance: FISH OIL
     Dosage: 1200 UNK, UNK
     Route: 048
     Dates: start: 201412
  8. PLACEBO [Suspect]
     Active Substance: UNSPECIFIED INGREDIENT
     Indication: PSORIASIS
     Dosage: 1 DOSAGE UNITS, 1X/DAY
     Route: 061
     Dates: start: 20141112, end: 20141210
  9. CARVEDILOL. [Concomitant]
     Active Substance: CARVEDILOL
     Dosage: 50 MG, 1X/DAY
     Route: 048
     Dates: start: 201412
  10. PRAVASTATIN [Concomitant]
     Active Substance: PRAVASTATIN\PRAVASTATIN SODIUM
     Dosage: 20 MG, 1X/DAY
     Route: 048
     Dates: start: 200405
  11. GABAPENTIN. [Concomitant]
     Active Substance: GABAPENTIN
     Dosage: 600 MG, 1X/DAY
     Route: 048
     Dates: start: 2011
  12. SERTRALINE [Concomitant]
     Active Substance: SERTRALINE HYDROCHLORIDE
     Indication: ANXIETY
     Dosage: 100 MG, 1X/DAY
     Route: 048
     Dates: start: 201405
  13. GLUCOSAMINE/CHONDROITIN SULFATE [Concomitant]
     Dosage: 400 MG, 1X/DAY
     Route: 048
     Dates: start: 2000
  14. OXYBUTYNIN [Concomitant]
     Active Substance: OXYBUTYNIN
     Dosage: 15 MG, 1X/DAY
     Route: 048
     Dates: start: 2009
  15. PANTOPRAZOLE [Concomitant]
     Active Substance: PANTOPRAZOLE SODIUM
     Dosage: 20 MG, 1X/DAY
     Route: 048
     Dates: start: 200405
  16. QUINAPRIL [Concomitant]
     Active Substance: QUINAPRIL\QUINAPRIL HYDROCHLORIDE
     Dosage: 40 MG, 1X/DAY
     Route: 048
     Dates: start: 201405
  17. CALTRATE [Concomitant]
     Active Substance: CALCIUM CARBONATE
     Dosage: 1 TABLETS, 1X/DAY
     Route: 048
     Dates: start: 2001
  18. CENTRUM SILVER [Concomitant]
     Active Substance: MINERALS\VITAMINS
     Dosage: 1 TABLETS, 1X/DAY
     Route: 048
     Dates: start: 2001
  19. MENTHOL COUGH DROPS [Concomitant]
     Dosage: 1 TABLETS, 1X/DAY
     Route: 048
     Dates: start: 20141117, end: 20141217
  20. FAMOTIDINE. [Concomitant]
     Active Substance: FAMOTIDINE
     Dosage: 40 MG, UNK
     Route: 048

REACTIONS (1)
  - Pneumonia [Recovered/Resolved]

NARRATIVE: CASE EVENT DATE: 20141211
